FAERS Safety Report 9499417 (Version 2)
Quarter: 2013Q4

REPORT INFORMATION
  Report Type: Report from Study
  Country: US (occurrence: US)
  Receive Date: 20130107
  Receipt Date: 20131209
  Transmission Date: 20140711
  Serious: Yes (Other)
  Sender: FDA-Public Use
  Company Number: PHEH2012US022245

PATIENT
  Sex: Male

DRUGS (7)
  1. GILENYA [Suspect]
     Indication: MULTIPLE SCLEROSIS
     Dosage: 0.5 MG, QD
     Route: 048
     Dates: start: 20121011
  2. SYNTHROID [Concomitant]
     Dosage: 50 UG, UNK
  3. VITAMIN D [Concomitant]
  4. NUVIGIL [Concomitant]
     Dosage: 250 MG, UNK
  5. MULTIVITAMINS [Concomitant]
  6. FISH OIL [Concomitant]
  7. NUEDEXTA [Concomitant]

REACTIONS (5)
  - Central nervous system lesion [Recovering/Resolving]
  - Memory impairment [Unknown]
  - Confusional state [Unknown]
  - Disturbance in attention [Unknown]
  - Visual impairment [Unknown]
